FAERS Safety Report 9712321 (Version 8)
Quarter: 2015Q2

REPORT INFORMATION
  Report Type: Report from Study
  Country: US (occurrence: US)
  Receive Date: 20131126
  Receipt Date: 20150605
  Transmission Date: 20150821
  Serious: Yes (Hospitalization, Other)
  Sender: FDA-Public Use
  Company Number: US-SA-2013SA120036

PATIENT
  Age: 61 Year
  Sex: Male

DRUGS (8)
  1. PAMELOR [Suspect]
     Active Substance: NORTRIPTYLINE HYDROCHLORIDE
     Indication: SMALL FIBRE NEUROPATHY
     Route: 065
  2. AMPYRA [Concomitant]
     Active Substance: DALFAMPRIDINE
  3. AUBAGIO [Suspect]
     Active Substance: TERIFLUNOMIDE
     Indication: MULTIPLE SCLEROSIS
     Route: 048
  4. GABAPENTIN. [Suspect]
     Active Substance: GABAPENTIN
     Indication: SMALL FIBRE NEUROPATHY
     Route: 065
  5. DIOVAN [Concomitant]
     Active Substance: VALSARTAN
  6. OXYCODONE [Concomitant]
     Active Substance: OXYCODONE
  7. AUBAGIO [Suspect]
     Active Substance: TERIFLUNOMIDE
     Indication: MULTIPLE SCLEROSIS
     Route: 048
     Dates: start: 20121116
  8. CLONAZEPAM. [Concomitant]
     Active Substance: CLONAZEPAM

REACTIONS (24)
  - Multiple sclerosis relapse [Unknown]
  - Fall [Unknown]
  - Feeling abnormal [Unknown]
  - Tinnitus [Recovering/Resolving]
  - Multiple sclerosis [Not Recovered/Not Resolved]
  - Anaemia [Recovering/Resolving]
  - Walking disability [Unknown]
  - Temperature intolerance [Unknown]
  - Sepsis [Unknown]
  - Dehydration [Not Recovered/Not Resolved]
  - Muscle spasms [Unknown]
  - Pneumonia [Unknown]
  - Sciatica [Not Recovered/Not Resolved]
  - Stress [Not Recovered/Not Resolved]
  - Drug dose omission [Unknown]
  - Syncope [Recovering/Resolving]
  - Pain in extremity [Not Recovered/Not Resolved]
  - Haemoglobin decreased [Unknown]
  - Small fibre neuropathy [Unknown]
  - Wheelchair user [Unknown]
  - Asthenia [Recovered/Resolved]
  - Pyrexia [Not Recovered/Not Resolved]
  - Memory impairment [Unknown]
  - Decreased appetite [Unknown]

NARRATIVE: CASE EVENT DATE: 201309
